FAERS Safety Report 4617796-6 (Version None)
Quarter: 2005Q1

REPORT INFORMATION
  Report Type: 
  Country: None (occurrence: None)
  Receive Date: 20050322
  Receipt Date: 20050309
  Transmission Date: 20050727
  Serious: Yes (Hospitalization)
  Sender: FDA-Public Use
  Company Number: 2005043287

PATIENT
  Age: 72 Year
  Sex: Male

DRUGS (6)
  1. ALDACTONE [Suspect]
     Indication: HEPATIC CIRRHOSIS
     Dosage: 100 MG (100 MG, DAILY INTERVAL:  EVERY DAY), ORAL
     Route: 048
     Dates: start: 20050101
  2. FUROSEMIDE [Suspect]
     Indication: HEPATIC CIRRHOSIS
     Dosage: 60 MG (40 MG, DAILY INTERVAL:  EVERY DAY), ORAL
     Route: 048
     Dates: start: 20050101
  3. DIGOXIN [Concomitant]
  4. FERROUS SULFATE TAB [Concomitant]
  5. NORFLOXACIN [Concomitant]
  6. LACTULOSE [Concomitant]

REACTIONS (6)
  - BLOOD SODIUM DECREASED [None]
  - DRUG INTERACTION [None]
  - ENCEPHALOPATHY [None]
  - HYPERKALAEMIA [None]
  - INTERNATIONAL NORMALISED RATIO INCREASED [None]
  - PROTHROMBIN TIME SHORTENED [None]
